FAERS Safety Report 8858959 (Version 1)
Quarter: 2012Q4

REPORT INFORMATION
  Report Type: 
  Country: JP (occurrence: JP)
  Receive Date: 20121024
  Receipt Date: 20121024
  Transmission Date: 20130627
  Serious: Yes (Hospitalization)
  Sender: FDA-Public Use
  Company Number: JP-ASTELLAS-2012JP009497

PATIENT
  Sex: Male

DRUGS (4)
  1. VESICARE [Suspect]
     Dosage: 2.5 mg, bid
     Route: 048
  2. DEPAS [Concomitant]
     Dosage: UNK
     Route: 048
  3. BROTIZOLAM [Concomitant]
     Dosage: UNK
     Route: 048
  4. PAXIL [Concomitant]
     Dosage: UNK
     Route: 048

REACTIONS (2)
  - Intentional drug misuse [Unknown]
  - Diplopia [Unknown]
